FAERS Safety Report 6620640-9 (Version None)
Quarter: 2010Q1

REPORT INFORMATION
  Report Type: 
  Country: None (occurrence: None)
  Receive Date: 20100223
  Receipt Date: 20100112
  Transmission Date: 20100710
  Serious: No
  Sender: FDA-Public Use
  Company Number: 004361

PATIENT
  Sex: Female
  Weight: 72.5 kg

DRUGS (6)
  1. CIMZIA [Suspect]
     Indication: RHEUMATOID ARTHRITIS
     Dosage: (400 MG 1X/MONTH, 400 MG SUBCUTANEOUS)
     Route: 058
     Dates: start: 20091005
  2. SYNTHROID [Concomitant]
  3. ZOCOR [Concomitant]
  4. SYMBICORT [Concomitant]
  5. ASPIRIN [Concomitant]
  6. LOVAZA [Concomitant]

REACTIONS (2)
  - ASTHMA [None]
  - COUGH [None]
